FAERS Safety Report 22229868 (Version 1)
Quarter: 2023Q2

REPORT INFORMATION
  Report Type: Spontaneous
  Country: US (occurrence: None)
  Receive Date: 20230418
  Receipt Date: 20230418
  Transmission Date: 20230721
  Serious: Yes (Hospitalization)
  Sender: FDA-Public Use
  Company Number: None

PATIENT
  Age: 52 Year
  Sex: Male

DRUGS (1)
  1. HUMIRA [Suspect]
     Active Substance: ADALIMUMAB
     Dosage: 80MG OTHER SUBCUTANEOUS
     Route: 058

REACTIONS (2)
  - Colonic fistula [None]
  - Colonic abscess [None]

NARRATIVE: CASE EVENT DATE: 20230418
